FAERS Safety Report 15318837 (Version 1)
Quarter: 2018Q3

REPORT INFORMATION
  Report Type: Spontaneous
  Country: US (occurrence: US)
  Receive Date: 20180819
  Receipt Date: 20180819
  Transmission Date: 20181010
  Serious: Yes (Disabling)
  Sender: FDA-Public Use
  Company Number: None

PATIENT
  Age: 8 Year
  Sex: Male
  Weight: 29.25 kg

DRUGS (2)
  1. MIRALAX [Suspect]
     Active Substance: POLYETHYLENE GLYCOL 3350
     Indication: CONSTIPATION
     Dosage: ?          QUANTITY:.5 CAPSULE(S);?
     Route: 048
     Dates: end: 20180501
  2. MIRALAX [Concomitant]
     Active Substance: POLYETHYLENE GLYCOL 3350

REACTIONS (7)
  - Fall [None]
  - Injury [None]
  - Anger [None]
  - Movement disorder [None]
  - Defiant behaviour [None]
  - Aggression [None]
  - Logorrhoea [None]

NARRATIVE: CASE EVENT DATE: 20140101
